FAERS Safety Report 7712546-9 (Version None)
Quarter: 2011Q3

REPORT INFORMATION
  Report Type: 
  Country: None (occurrence: None)
  Receive Date: 20110826
  Receipt Date: 20110825
  Transmission Date: 20111222
  Serious: Yes (Hospitalization, Other)
  Sender: FDA-Public Use
  Company Number: US-AMGEN-USASP2011040788

PATIENT
  Age: 60 Year
  Sex: Female

DRUGS (1)
  1. ENBREL [Suspect]
     Indication: RHEUMATOID ARTHRITIS
     Dosage: UNK
     Dates: start: 20001201

REACTIONS (15)
  - SUPERFICIAL INJURY OF EYE [None]
  - UTERINE HAEMORRHAGE [None]
  - JOINT RANGE OF MOTION DECREASED [None]
  - RHEUMATOID ARTHRITIS [None]
  - HIP ARTHROPLASTY [None]
  - SHOULDER ARTHROPLASTY [None]
  - CATARACT [None]
  - FOOT OPERATION [None]
  - DISABILITY [None]
  - FEELING ABNORMAL [None]
  - PAIN [None]
  - BONE DISORDER [None]
  - HAND DEFORMITY [None]
  - EYE INFECTION [None]
  - KNEE ARTHROPLASTY [None]
